FAERS Safety Report 7728267-2 (Version None)
Quarter: 2011Q3

REPORT INFORMATION
  Report Type: 
  Country: None (occurrence: None)
  Receive Date: 20110905
  Receipt Date: 20110826
  Transmission Date: 20111222
  Serious: Yes (Hospitalization)
  Sender: FDA-Public Use
  Company Number: PHHY2011VE76923

PATIENT
  Sex: Female

DRUGS (1)
  1. ZOLEDRONOC ACID [Suspect]
     Indication: OSTEOPOROSIS
     Dosage: 5 MG, UNK (ONCE A YEAR)
     Route: 042

REACTIONS (3)
  - BLADDER DISORDER [None]
  - DIABETES MELLITUS INADEQUATE CONTROL [None]
  - PAIN IN EXTREMITY [None]
